FAERS Safety Report 19964362 (Version 1)
Quarter: 2021Q4

REPORT INFORMATION
  Report Type: Spontaneous
  Country: FR (occurrence: FR)
  Receive Date: 20211018
  Receipt Date: 20211018
  Transmission Date: 20220303
  Serious: Yes (Hospitalization, Congenital Anomaly, Other)
  Sender: FDA-Public Use
  Company Number: FR-ABBVIE-21K-056-4119048-00

PATIENT

DRUGS (7)
  1. VALPROATE SODIUM [Suspect]
     Active Substance: VALPROATE SODIUM
     Indication: Maternal exposure timing unspecified
     Route: 064
  2. FOLIC ACID [Concomitant]
     Active Substance: FOLIC ACID
     Indication: Maternal exposure timing unspecified
     Route: 064
  3. VITAMIN D [Concomitant]
     Active Substance: VITAMIN D NOS
     Indication: Maternal exposure timing unspecified
     Route: 064
  4. VITAMIN K [Concomitant]
     Active Substance: PHYTONADIONE
     Indication: Maternal exposure timing unspecified
     Route: 064
  5. SPASFON [Concomitant]
     Indication: Maternal exposure timing unspecified
     Route: 064
  6. NITROXOLINE [Concomitant]
     Active Substance: NITROXOLINE
     Indication: Maternal exposure timing unspecified
     Route: 064
  7. CLAMOXYL [Concomitant]
     Indication: Maternal exposure timing unspecified
     Route: 064

REACTIONS (42)
  - Dermatitis atopic [Unknown]
  - Osteochondrosis [Unknown]
  - Infantile spasms [Unknown]
  - Scoliosis [Unknown]
  - Kyphosis [Unknown]
  - Spine malformation [Unknown]
  - Cerebral ischaemia [Unknown]
  - Talipes [Unknown]
  - Neonatal respiratory distress [Unknown]
  - Pectus excavatum [Unknown]
  - Dysmorphism [Unknown]
  - Hypermobility syndrome [Unknown]
  - Astigmatism [Unknown]
  - Developmental delay [Unknown]
  - Speech disorder [Unknown]
  - Psychomotor skills impaired [Unknown]
  - Behaviour disorder [Unknown]
  - Impaired reasoning [Unknown]
  - Cognitive disorder [Unknown]
  - Memory impairment [Unknown]
  - Disturbance in attention [Unknown]
  - Learning disorder [Unknown]
  - Dysgraphia [Unknown]
  - Coordination abnormal [Unknown]
  - Visuospatial deficit [Unknown]
  - Dyspraxia [Unknown]
  - Neonatal hypocalcaemia [Unknown]
  - Hypotonia [Unknown]
  - Abnormal behaviour [Unknown]
  - Ear disorder [Unknown]
  - Nasal disorder [Unknown]
  - Pharyngeal disorder [Unknown]
  - Anger [Unknown]
  - Frustration tolerance decreased [Unknown]
  - Encopresis [Unknown]
  - Stereotypy [Unknown]
  - Amino acid level abnormal [Unknown]
  - Unevaluable event [Unknown]
  - Phobia [Unknown]
  - Anxiety [Unknown]
  - Enuresis [Unknown]
  - Foetal exposure during pregnancy [Unknown]

NARRATIVE: CASE EVENT DATE: 20000101
